FAERS Safety Report 7881802-6 (Version None)
Quarter: 2011Q4

REPORT INFORMATION
  Report Type: 
  Country: None (occurrence: None)
  Receive Date: 20111101
  Receipt Date: 20110531
  Transmission Date: 20120403
  Serious: No
  Sender: FDA-Public Use
  Company Number: US-AMGEN-USASP2011028149

PATIENT
  Age: 43 Year
  Sex: Female
  Weight: 65.306 kg

DRUGS (4)
  1. CHLOROTHIAZIDE [Concomitant]
     Dosage: 250 MG, UNK
  2. PROZAC [Concomitant]
     Dosage: 10 MG, UNK
  3. XANAX [Concomitant]
     Dosage: 0.5 MG, UNK
  4. ENBREL [Suspect]
     Indication: PSORIASIS
     Dosage: 50 MG, 2 TIMES/WK
     Route: 058
     Dates: start: 20110505

REACTIONS (4)
  - INJECTION SITE ERYTHEMA [None]
  - INJECTION SITE WARMTH [None]
  - INJECTION SITE PAIN [None]
  - INJECTION SITE SWELLING [None]
